FAERS Safety Report 8842315 (Version 3)
Quarter: 2015Q2

REPORT INFORMATION
  Report Type: Spontaneous
  Country: US (occurrence: US)
  Receive Date: 20121016
  Receipt Date: 20150630
  Transmission Date: 20150821
  Serious: Yes (Hospitalization, Disabling, Other)
  Sender: FDA-Public Use
  Company Number: US-009507513-1210USA004453

PATIENT
  Sex: Female

DRUGS (5)
  1. FOSAMAX [Suspect]
     Active Substance: ALENDRONATE SODIUM
     Indication: OSTEOPOROSIS
     Dosage: 70 MG, QW
     Route: 048
     Dates: start: 2001, end: 20080923
  2. VITAMINS (UNSPECIFIED) [Concomitant]
     Active Substance: VITAMINS
     Dosage: UNK
     Dates: start: 1998
  3. VITAMIN D [Concomitant]
     Active Substance: CHOLECALCIFEROL
     Dosage: 2800 MG, UNK
     Dates: start: 1998
  4. CALCIUM (UNSPECIFIED) [Concomitant]
     Active Substance: CALCIUM
     Dosage: 1200 MG, UNK
     Dates: start: 1998
  5. OMEGA-3 MARINE TRIGLYCERIDES [Concomitant]
     Active Substance: FISH OIL
     Dosage: UNK
     Dates: start: 1998

REACTIONS (15)
  - Nasal septum deviation [Unknown]
  - Hiatus hernia [Unknown]
  - Basal cell carcinoma [Unknown]
  - Mastectomy [Unknown]
  - Femur fracture [Not Recovered/Not Resolved]
  - Back pain [Unknown]
  - Scoliosis [Unknown]
  - Vitamin D deficiency [Unknown]
  - Eczema [Unknown]
  - Anaemia postoperative [Unknown]
  - Low turnover osteopathy [Not Recovered/Not Resolved]
  - Hypercalciuria [Unknown]
  - Gastritis [Unknown]
  - Gastrooesophageal reflux disease [Unknown]
  - Intramedullary rod insertion [Unknown]

NARRATIVE: CASE EVENT DATE: 20061016
